FAERS Safety Report 4991428-X (Version None)
Quarter: 2006Q2

REPORT INFORMATION
  Report Type: 
  Country: None (occurrence: None)
  Receive Date: 20060502
  Receipt Date: 20060426
  Transmission Date: 20061013
  Serious: No
  Sender: FDA-Public Use
  Company Number: TUK2006A00027

PATIENT
  Age: 56 Year
  Sex: 0

DRUGS (4)
  1. ACTOS [Suspect]
     Indication: DIABETES MELLITUS
     Dosage: 30 MG ORAL
     Route: 048
     Dates: start: 20050127, end: 20060215
  2. ATORVASTATIN CALCIUM [Concomitant]
  3. LOSARTAN POTASSIUM [Concomitant]
  4. METFORMIN [Concomitant]

REACTIONS (4)
  - FACE OEDEMA [None]
  - HYPERTENSION [None]
  - LIPIDS INCREASED [None]
  - SINUS HEADACHE [None]
